FAERS Safety Report 11850244 (Version 1)
Quarter: 2015Q4

REPORT INFORMATION
  Report Type: Spontaneous
  Country: CH (occurrence: CH)
  Receive Date: 20151218
  Receipt Date: 20151218
  Transmission Date: 20160305
  Serious: Yes (Hospitalization, Other)
  Sender: FDA-Public Use
  Company Number: CH-BAXTER-2015BAX067267

PATIENT
  Age: 4 Year
  Sex: Female
  Weight: 16 kg

DRUGS (7)
  1. METHOTREXATE FARMOS [Suspect]
     Active Substance: METHOTREXATE
     Route: 037
     Dates: start: 20150826
  2. ENDOXAN 1 G [Suspect]
     Active Substance: CYCLOPHOSPHAMIDE
     Indication: ACUTE LYMPHOCYTIC LEUKAEMIA
     Route: 065
     Dates: start: 20150917
  3. METHOTREXATE FARMOS [Suspect]
     Active Substance: METHOTREXATE
     Indication: ACUTE LYMPHOCYTIC LEUKAEMIA
     Route: 037
     Dates: start: 20150813
  4. METHOTREXATE FARMOS [Suspect]
     Active Substance: METHOTREXATE
     Route: 042
     Dates: start: 20150819
  5. METHOTREXATE FARMOS [Suspect]
     Active Substance: METHOTREXATE
     Route: 042
     Dates: start: 20150912
  6. METHOTREXATE FARMOS [Suspect]
     Active Substance: METHOTREXATE
     Route: 037
     Dates: start: 20150921
  7. CYTARABIN [Suspect]
     Active Substance: CYTARABINE
     Indication: ACUTE LYMPHOCYTIC LEUKAEMIA
     Route: 065
     Dates: start: 20150919, end: 20150922

REACTIONS (6)
  - Abdominal compartment syndrome [Unknown]
  - Toxic leukoencephalopathy [Not Recovered/Not Resolved]
  - Escherichia sepsis [Unknown]
  - Herpes simplex [Unknown]
  - Neutropenia [Unknown]
  - Septic shock [Unknown]

NARRATIVE: CASE EVENT DATE: 20150826
